FAERS Safety Report 21812325 (Version 1)
Quarter: 2023Q1

REPORT INFORMATION
  Report Type: Spontaneous
  Country: FR (occurrence: FR)
  Receive Date: 20230103
  Receipt Date: 20230103
  Transmission Date: 20230418
  Serious: Yes (Hospitalization, Other)
  Sender: FDA-Public Use
  Company Number: None

PATIENT
  Age: 38 Year
  Sex: Female
  Weight: 84.4 kg

DRUGS (4)
  1. SALAZOPYRINE [Suspect]
     Active Substance: SULFASALAZINE
     Indication: Psoriatic arthropathy
     Dosage: 500 MG, EVERY 12 H
     Route: 048
     Dates: start: 202202, end: 20221212
  2. TECFIDERA [Suspect]
     Active Substance: DIMETHYL FUMARATE
     Indication: Multiple sclerosis
     Dosage: 2 DF, DAILY
     Route: 048
     Dates: end: 202210
  3. SULFADIAZINE [Suspect]
     Active Substance: SULFADIAZINE
     Indication: Congenital toxoplasmosis
     Dosage: 1500 MG, EVERY 12 HOURS
     Route: 048
     Dates: start: 20221122, end: 20221212
  4. PYRIMETHAMINE [Suspect]
     Active Substance: PYRIMETHAMINE
     Indication: Congenital toxoplasmosis
     Dosage: 50 MG, 1X/DAY
     Route: 048
     Dates: start: 20221122, end: 20221212

REACTIONS (3)
  - Maternal exposure during pregnancy [Recovered/Resolved]
  - HELLP syndrome [Recovered/Resolved]
  - Pregnancy on contraceptive [Recovered/Resolved]

NARRATIVE: CASE EVENT DATE: 20221211
